FAERS Safety Report 5822867-2 (Version None)
Quarter: 2008Q3

REPORT INFORMATION
  Report Type: 
  Country: None (occurrence: None)
  Receive Date: 20080724
  Receipt Date: 20080724
  Transmission Date: 20090109
  Serious: Yes (Disabling, Other)
  Sender: FDA-Public Use
  Company Number: None

PATIENT
  Sex: Female
  Weight: 81.6475 kg

DRUGS (1)
  1. LEVAQUIN [Suspect]
     Indication: DIVERTICULITIS
     Dosage: 1 TABLET DAILY PO
     Route: 048
     Dates: start: 20080710, end: 20080720

REACTIONS (2)
  - MOBILITY DECREASED [None]
  - ROTATOR CUFF SYNDROME [None]
